FAERS Safety Report 22299254 (Version 1)
Quarter: 2023Q2

REPORT INFORMATION
  Report Type: Spontaneous
  Country: US (occurrence: US)
  Receive Date: 20230509
  Receipt Date: 20230509
  Transmission Date: 20230722
  Serious: No
  Sender: FDA-Public Use
  Company Number: US-PFIZER INC-PV202300081851

PATIENT
  Age: 68 Year
  Sex: Male

DRUGS (3)
  1. INLYTA [Suspect]
     Active Substance: AXITINIB
     Dosage: 5 MG
  2. INLYTA [Suspect]
     Active Substance: AXITINIB
     Dosage: 2 TABLETS TWICE DAILY
  3. INLYTA [Suspect]
     Active Substance: AXITINIB
     Dosage: 1 TABLET TWICE DAILY

REACTIONS (2)
  - Nausea [Unknown]
  - Abdominal discomfort [Unknown]
